FAERS Safety Report 13435127 (Version 3)
Quarter: 2017Q2

REPORT INFORMATION
  Report Type: Spontaneous
  Country: US (occurrence: US)
  Receive Date: 20170413
  Receipt Date: 20170517
  Transmission Date: 20170830
  Serious: No
  Sender: FDA-Public Use
  Company Number: US-GLAXOSMITHKLINE-US2017049928

PATIENT
  Sex: Male
  Weight: 33.11 kg

DRUGS (1)
  1. VENTOLIN HFA [Suspect]
     Active Substance: ALBUTEROL SULFATE
     Indication: WHEEZING
     Dosage: 1 DF, QD
     Route: 055
     Dates: start: 20170222, end: 20170224

REACTIONS (2)
  - Product use issue [Unknown]
  - Drug ineffective [Unknown]
